FAERS Safety Report 13708525 (Version 1)
Quarter: 2017Q2

REPORT INFORMATION
  Report Type: Spontaneous
  Country: US (occurrence: US)
  Receive Date: 20170630
  Receipt Date: 20170630
  Transmission Date: 20170830
  Serious: No
  Sender: FDA-Public Use
  Company Number: US-SUNOVION-2017SUN002729

PATIENT
  Age: 62 Year
  Sex: Female
  Weight: 69.84 kg

DRUGS (7)
  1. LATUDA [Suspect]
     Active Substance: LURASIDONE HYDROCHLORIDE
     Indication: BIPOLAR DISORDER
     Dosage: 20 MG, QD
     Route: 048
  2. AMBIEN [Concomitant]
     Active Substance: ZOLPIDEM TARTRATE
     Indication: INSOMNIA
     Dosage: UNK,QD
     Route: 048
  3. PAROXETINE. [Concomitant]
     Active Substance: PAROXETINE
     Dosage: UNK QD
     Route: 048
  4. CLONAZEPAM. [Concomitant]
     Active Substance: CLONAZEPAM
     Dosage: 0.5 MG, QD
     Route: 048
  5. TOPAMAX [Concomitant]
     Active Substance: TOPIRAMATE
     Dosage: UNK QD
     Route: 048
  6. CLONIDINE. [Concomitant]
     Active Substance: CLONIDINE
     Indication: ANXIETY
     Dosage: UNK UNK, QD
     Route: 048
  7. XANAX [Concomitant]
     Active Substance: ALPRAZOLAM
     Dosage: UNK UNK, QD
     Route: 048

REACTIONS (10)
  - Insomnia [Unknown]
  - Arthralgia [Unknown]
  - Memory impairment [Unknown]
  - Tremor [Unknown]
  - Bone pain [Unknown]
  - Hyperhidrosis [Unknown]
  - Weight increased [Unknown]
  - Fatigue [Unknown]
  - Cough [Unknown]
  - Pain [Unknown]
